FAERS Safety Report 21997666 (Version 2)
Quarter: 2023Q1

REPORT INFORMATION
  Report Type: Report from Study
  Country: ES (occurrence: ES)
  Receive Date: 20230216
  Receipt Date: 20230302
  Transmission Date: 20230418
  Serious: Yes (Hospitalization)
  Sender: FDA-Public Use
  Company Number: ES-TEVA-2023-ES-2855839

PATIENT
  Age: 55 Year
  Sex: Female
  Weight: 90 kg

DRUGS (3)
  1. MYCOPHENOLIC ACID [Suspect]
     Active Substance: MYCOPHENOLIC ACID
     Indication: Chronic kidney disease
     Dosage: 1080 MILLIGRAM DAILY; 360MG EVERY 8 HOURS
     Route: 065
  2. EVEROLIMUS [Suspect]
     Active Substance: EVEROLIMUS
     Indication: Chronic kidney disease
     Dosage: 1 MILLIGRAM DAILY; 1MG EVERY 24 HOUR
     Route: 065
  3. PREDNISONE [Suspect]
     Active Substance: PREDNISONE
     Indication: Chronic kidney disease
     Dosage: 5 MILLIGRAM DAILY; 5MG EVERY 24 HOURS
     Route: 065

REACTIONS (3)
  - Pneumonia [Unknown]
  - Tracheobronchitis [Unknown]
  - Pseudomonas infection [Recovering/Resolving]
